FAERS Safety Report 23569614 (Version 1)
Quarter: 2024Q1

REPORT INFORMATION
  Report Type: Spontaneous
  Country: US (occurrence: US)
  Receive Date: 20240227
  Receipt Date: 20240227
  Transmission Date: 20240409
  Serious: Yes (Hospitalization, Other)
  Sender: FDA-Public Use
  Company Number: US-AMGEN-212818

PATIENT
  Age: 3 Year
  Sex: Female

DRUGS (1)
  1. EPOETIN ALFA [Suspect]
     Active Substance: ERYTHROPOIETIN
     Indication: HIV infection
     Dosage: UNK
     Route: 065

REACTIONS (6)
  - Conjunctivitis [Unknown]
  - Erythema multiforme [Unknown]
  - Skin exfoliation [Unknown]
  - Pancreatitis [Unknown]
  - Haemolytic anaemia [Unknown]
  - Hypersensitivity [Unknown]

NARRATIVE: CASE EVENT DATE: 19980915
